FAERS Safety Report 7056927-8 (Version None)
Quarter: 2010Q4

REPORT INFORMATION
  Report Type: 
  Country: None (occurrence: None)
  Receive Date: 20101022
  Receipt Date: 20101012
  Transmission Date: 20110411
  Serious: Yes (Hospitalization)
  Sender: FDA-Public Use
  Company Number: FR-JNJFOC-20100303220

PATIENT
  Age: 43 Year
  Sex: Male

DRUGS (3)
  1. REMICADE [Suspect]
     Indication: ANKYLOSING SPONDYLITIS
  2. REMICADE [Suspect]
     Dosage: 39TH INFUSION
  3. REMICADE [Suspect]

REACTIONS (1)
  - BENIGN RENAL NEOPLASM [None]
